FAERS Safety Report 7899917-5 (Version None)
Quarter: 2011Q4

REPORT INFORMATION
  Report Type: 
  Country: None (occurrence: None)
  Receive Date: 20111107
  Receipt Date: 20111005
  Transmission Date: 20120403
  Serious: No
  Sender: FDA-Public Use
  Company Number: US-AMGEN-USASP2011045216

PATIENT
  Age: 19 Year
  Sex: Female
  Weight: 63.492 kg

DRUGS (3)
  1. VITAMIN D [Concomitant]
     Dosage: UNK
     Dates: start: 20100810
  2. STEROID [Concomitant]
     Indication: SKIN STRIAE
     Dosage: UNK
     Route: 061
  3. ENBREL [Suspect]
     Indication: PSORIASIS
     Dosage: 50 MG, 2 TIMES/WK
     Route: 058
     Dates: start: 20110818, end: 20110920

REACTIONS (6)
  - ACNE [None]
  - INJECTION SITE HAEMATOMA [None]
  - INJECTION SITE PAIN [None]
  - PSORIASIS [None]
  - INJECTION SITE ERYTHEMA [None]
  - INJECTION SITE HAEMORRHAGE [None]
